FAERS Safety Report 8280562-7 (Version None)
Quarter: 2012Q2

REPORT INFORMATION
  Report Type: 
  Country: None (occurrence: None)
  Receive Date: 20120412
  Receipt Date: 20110915
  Transmission Date: 20120825
  Serious: No
  Sender: FDA-Public Use
  Company Number: US-ASTRAZENECA-2011SE55975

PATIENT
  Age: 38 Year
  Sex: Male
  Weight: 90.3 kg

DRUGS (3)
  1. NEXIUM [Suspect]
     Indication: GASTROOESOPHAGEAL REFLUX DISEASE
     Route: 048
     Dates: start: 20110101, end: 20110301
  2. NEXIUM [Suspect]
     Indication: BARRETT'S OESOPHAGUS
     Route: 048
     Dates: start: 20110101, end: 20110301
  3. SIMVASTATIN [Concomitant]

REACTIONS (4)
  - VOMITING [None]
  - BLOOD POTASSIUM ABNORMAL [None]
  - BURNING SENSATION [None]
  - OFF LABEL USE [None]
